FAERS Safety Report 6370030-1 (Version None)
Quarter: 2009Q3

REPORT INFORMATION
  Report Type: 
  Country: None (occurrence: None)
  Receive Date: 20090923
  Receipt Date: 20071127
  Transmission Date: 20100115
  Serious: Yes (Other)
  Sender: FDA-Public Use
  Company Number: US-ASTRAZENECA-2006UW08264

PATIENT
  Age: 8921 Day
  Sex: Female
  Weight: 75.7 kg

DRUGS (22)
  1. SEROQUEL [Suspect]
     Indication: DEPRESSION
     Route: 048
     Dates: start: 20060101
  2. SEROQUEL [Suspect]
     Dosage: 25 MG - 50 MG
     Route: 048
     Dates: start: 20060125
  3. GLIPIZIDE [Concomitant]
     Route: 048
     Dates: start: 20040622
  4. GLUCOPHAGE [Concomitant]
     Dosage: 500 MG - 1000 MG
     Route: 048
     Dates: start: 20070225
  5. AVANDIA [Concomitant]
     Dates: start: 20031110
  6. HYDROXYZ PAM [Concomitant]
     Dates: start: 20070129
  7. CITALOPRAM HYDRO [Concomitant]
     Dates: start: 20051005
  8. AMITRIPTYLINE HCL [Concomitant]
     Dates: start: 20030506
  9. ALPRAZOLAM [Concomitant]
     Dates: start: 20070129
  10. TRUVADA [Concomitant]
     Dates: start: 20070717
  11. GLYBURIDE/ MET [Concomitant]
     Dosage: 2.5/500 MG
     Dates: start: 20040519
  12. PROCHLORPER [Concomitant]
     Dates: start: 20070911
  13. VALTREX [Concomitant]
     Dates: start: 20070612
  14. NORVIR [Concomitant]
     Dates: start: 20070717
  15. REYATAZ [Concomitant]
     Dates: start: 20070717
  16. MIRTAZAPINE [Concomitant]
     Dates: start: 20051102
  17. LISINOPRIL [Concomitant]
     Dates: start: 20050901
  18. TEMAZEPAM [Concomitant]
     Dates: start: 20051102
  19. COMBIVIR [Concomitant]
     Dates: start: 20050210
  20. GLUCOTROL XL [Concomitant]
     Dates: start: 20020723
  21. ZYRTEC [Concomitant]
     Dates: start: 20030121
  22. ATRIPLA [Concomitant]
     Dates: start: 20070529

REACTIONS (2)
  - DIABETES MELLITUS [None]
  - DIABETES MELLITUS INADEQUATE CONTROL [None]
